FAERS Safety Report 5560706-8 (Version None)
Quarter: 2007Q4

REPORT INFORMATION
  Report Type: 
  Country: None (occurrence: None)
  Receive Date: 20071215
  Receipt Date: 20071113
  Transmission Date: 20080405
  Serious: No
  Sender: FDA-Public Use
  Company Number: US-ABBOTT-07P-163-0425436-00

PATIENT
  Sex: Female
  Weight: 112.2 kg

DRUGS (2)
  1. HUMIRA [Suspect]
     Indication: ANKYLOSING SPONDYLITIS
     Route: 058
     Dates: start: 20071018
  2. PHENOBARBITAL TAB [Concomitant]
     Indication: CONVULSION
     Route: 048
     Dates: start: 19980101

REACTIONS (1)
  - PHARYNGOLARYNGEAL PAIN [None]
